FAERS Safety Report 13451571 (Version 4)
Quarter: 2021Q2

REPORT INFORMATION
  Report Type: Spontaneous
  Country: PL (occurrence: PL)
  Receive Date: 20170418
  Receipt Date: 20210522
  Transmission Date: 20210716
  Serious: Yes (Other)
  Sender: FDA-Public Use
  Company Number: PL-AUROBINDO-AUR-APL-2017-32596

PATIENT
  Age: 67 Year
  Sex: Male

DRUGS (22)
  1. MORPHINE [Suspect]
     Active Substance: MORPHINE
     Dosage: AS NECESSARY
     Route: 058
     Dates: start: 201208
  2. PAPAVERINE [Concomitant]
     Active Substance: PAPAVERINE
     Indication: ANALGESIC THERAPY
     Dosage: UNK
     Route: 065
     Dates: start: 2012
  3. VALPROIC ACID. [Concomitant]
     Active Substance: VALPROIC ACID
     Indication: EPILEPSY
     Dosage: 500 MG, TWO TIMES A DAY
     Route: 065
  4. TRIMETHOPRIM. [Concomitant]
     Active Substance: TRIMETHOPRIM
     Indication: MORGANELLA INFECTION
     Dosage: 5 MILLILITER, TWO TIMES A DAY, (240 MG/5 ML SUSPENSION, RECOMMENDED5 ML EVERY 5 H)
     Route: 048
     Dates: start: 20120621, end: 20120621
  5. MORPHINE [Suspect]
     Active Substance: MORPHINE
     Indication: PAIN
     Dosage: ATTEMPTS TO START MORPHINE AT INTERVAL OF 3?4 DAYS (1)
     Route: 048
     Dates: start: 2012, end: 2012
  6. MORPHINE [Suspect]
     Active Substance: MORPHINE
     Dosage: 2.5 MILLIGRAM SOLUTION AS NECESSARY
     Route: 048
     Dates: start: 20120615
  7. TRAMADOL. [Suspect]
     Active Substance: TRAMADOL
     Dosage: 50?75 MG IN DROPS AS NECESSARY
     Route: 048
     Dates: start: 2012
  8. MORPHINE [Suspect]
     Active Substance: MORPHINE
     Dosage: 5 MG, EVERY FOUR HOUR
     Route: 048
     Dates: start: 20120621
  9. CIPROFLOXACIN. [Concomitant]
     Active Substance: CIPROFLOXACIN
     Dosage: 500 MILLIGRAM, ONCE A DAY
     Route: 048
  10. AKTIL [Concomitant]
     Indication: PRODUCT USED FOR UNKNOWN INDICATION
     Dosage: 1 G, TWO TIMES A DAY
     Route: 048
  11. TRAMADOL. [Suspect]
     Active Substance: TRAMADOL
     Dosage: UNK
     Route: 065
     Dates: start: 201208
  12. TRAMADOL. [Suspect]
     Active Substance: TRAMADOL
     Dosage: CONTROLLED RELEASE FORM
     Route: 048
     Dates: end: 20120807
  13. TRAMADOL. [Suspect]
     Active Substance: TRAMADOL
     Dosage: 10 MILLIGRAM, ADMINISTERED EVERY 4 HOURS
     Route: 058
     Dates: start: 20120817
  14. TRAMADOL. [Suspect]
     Active Substance: TRAMADOL
     Dosage: UNK
     Route: 065
     Dates: start: 20120621
  15. MORPHINE [Suspect]
     Active Substance: MORPHINE
     Dosage: 5 MG, UNK
     Route: 048
     Dates: start: 20120621, end: 20120621
  16. MORPHINE [Suspect]
     Active Substance: MORPHINE
     Dosage: ADMINISTERED EVERY 4 HOURS
     Route: 058
     Dates: start: 20120817
  17. OXYCODONE [Suspect]
     Active Substance: OXYCODONE
     Indication: PAIN
     Dosage: 10 MILLIGRAM, TWO TIMES A DAY
     Route: 065
     Dates: start: 20120807
  18. INSULIN [Concomitant]
     Active Substance: INSULIN NOS
     Indication: TYPE 2 DIABETES MELLITUS
     Dosage: UNK
     Route: 065
  19. CODEINE [Concomitant]
     Active Substance: CODEINE
     Indication: ANALGESIC THERAPY
     Dosage: UNK
     Route: 065
     Dates: start: 2012
  20. CIPROFLOXACIN. [Concomitant]
     Active Substance: CIPROFLOXACIN
     Indication: MORGANELLA INFECTION
     Dosage: 1000 MILLIGRAM, ONCE A DAY
     Route: 048
     Dates: start: 201206
  21. TRAMADOL. [Suspect]
     Active Substance: TRAMADOL
     Indication: PAIN
     Dosage: 50 MILLIGRAM EVERY 6?8 HOURS
     Route: 048
     Dates: start: 20120606
  22. TRAMADOL. [Suspect]
     Active Substance: TRAMADOL
     Dosage: LARGER DOZE THAN INITIALLY
     Route: 048

REACTIONS (7)
  - Somnolence [Unknown]
  - Musculoskeletal stiffness [Unknown]
  - Pyrexia [Recovering/Resolving]
  - Apathy [Unknown]
  - Hyperthermia [Recovered/Resolved]
  - Communication disorder [Unknown]
  - Chills [Recovered/Resolved]

NARRATIVE: CASE EVENT DATE: 20120612
